FAERS Safety Report 4282291-3 (Version None)
Quarter: 2004Q1

REPORT INFORMATION
  Report Type: 
  Country: None (occurrence: None)
  Receive Date: 20040112
  Receipt Date: 20031021
  Transmission Date: 20041129
  Serious: No
  Sender: FDA-Public Use
  Company Number: PHEH2003US09684

PATIENT
  Sex: Female

DRUGS (4)
  1. ELIDEL [Suspect]
     Indication: ROSACEA
     Dosage: BID, TOPICAL
     Route: 061
     Dates: start: 20031017, end: 20031020
  2. NEURONTIN [Concomitant]
  3. INDERAL [Concomitant]
  4. PRAVACHOL [Concomitant]

REACTIONS (2)
  - EYE IRRITATION [None]
  - EYE PRURITUS [None]
